FAERS Safety Report 17040274 (Version 3)
Quarter: 2019Q4

REPORT INFORMATION
  Report Type: Report from Study
  Country: US (occurrence: US)
  Receive Date: 20191117
  Receipt Date: 20191124
  Transmission Date: 20200122
  Serious: No
  Sender: FDA-Public Use
  Company Number: NVSC2019US022173

PATIENT
  Sex: Male

DRUGS (1)
  1. ENTRESTO [Suspect]
     Active Substance: SACUBITRIL\VALSARTAN
     Indication: CARDIAC FAILURE
     Route: 048

REACTIONS (12)
  - Bronchitis [Unknown]
  - Confusional state [Unknown]
  - Abdominal discomfort [Unknown]
  - Drug ineffective [Unknown]
  - Hypertension [Unknown]
  - Post-traumatic stress disorder [Unknown]
  - Dizziness [Unknown]
  - Dyspnoea [Unknown]
  - Amnesia [Unknown]
  - Weight decreased [Unknown]
  - Cough [Unknown]
  - Blood pressure fluctuation [Unknown]
